FAERS Safety Report 21728769 (Version 1)
Quarter: 2022Q4

REPORT INFORMATION
  Report Type: Spontaneous
  Country: US (occurrence: US)
  Receive Date: 20221214
  Receipt Date: 20221214
  Transmission Date: 20230112
  Serious: No
  Sender: FDA-Public Use
  Company Number: US-JNJFOC-20221218531

PATIENT
  Sex: Male

DRUGS (1)
  1. SPRAVATO [Suspect]
     Active Substance: ESKETAMINE
     Indication: Product used for unknown indication
     Dosage: SECOND TREATMENT SESSION ON 02-DEC-2022
     Dates: start: 20221130

REACTIONS (3)
  - Feeling abnormal [Unknown]
  - Vertigo [Unknown]
  - Euphoric mood [Unknown]

NARRATIVE: CASE EVENT DATE: 20221202
